FAERS Safety Report 6426155-5 (Version None)
Quarter: 2009Q4

REPORT INFORMATION
  Report Type: 
  Country: None (occurrence: None)
  Receive Date: 20091104
  Receipt Date: 20091022
  Transmission Date: 20100525
  Serious: Yes (Hospitalization, Other)
  Sender: FDA-Public Use
  Company Number: US-ELI_LILLY_AND_COMPANY-US200910005860

PATIENT
  Sex: Male

DRUGS (8)
  1. FORTEO [Suspect]
     Dates: start: 20090101
  2. WARFARIN SODIUM [Concomitant]
     Dosage: 4 MG, UNK
  3. AVODART [Concomitant]
  4. PRIMIDONE [Concomitant]
  5. PREDNISONE TAB [Concomitant]
  6. DUONEB [Concomitant]
  7. CALTRATE [Concomitant]
     Dosage: 600 MG, UNK
  8. DILTIAZEM [Concomitant]
     Dosage: 120 MG, UNK

REACTIONS (2)
  - EMPHYSEMA [None]
  - RESPIRATORY TRACT INFECTION [None]
